FAERS Safety Report 9394315 (Version 1)
Quarter: 2013Q3

REPORT INFORMATION
  Report Type: Spontaneous
  Country: GB (occurrence: GB)
  Receive Date: 20130711
  Receipt Date: 20130711
  Transmission Date: 20140515
  Serious: Yes (Other)
  Sender: FDA-Public Use
  Company Number: GB-MERCK-1307GBR001582

PATIENT
  Age: 51 Year
  Sex: Female

DRUGS (5)
  1. LOSARTAN POTASSIUM [Suspect]
     Dosage: UNK
     Route: 048
     Dates: start: 20130530
  2. BISOPROLOL [Concomitant]
     Dosage: UNK
     Dates: start: 20130124
  3. IRBESARTAN [Concomitant]
     Dosage: UNK
     Dates: start: 20130124, end: 20130321
  4. OMEPRAZOLE [Concomitant]
     Dosage: UNK
     Dates: start: 20130307
  5. VENLAFAXINE HYDROCHLORIDE [Concomitant]
     Dosage: UNK
     Dates: start: 20130124

REACTIONS (4)
  - Sleep disorder [Unknown]
  - Palpitations [Unknown]
  - Nausea [Unknown]
  - Headache [Unknown]
